FAERS Safety Report 24301327 (Version 1)
Quarter: 2024Q3

REPORT INFORMATION
  Report Type: Spontaneous
  Country: US (occurrence: US)
  Receive Date: 20240910
  Receipt Date: 20240910
  Transmission Date: 20241017
  Serious: No
  Sender: ALVOGEN
  Company Number: US-ALVOGEN-2023092262

PATIENT
  Age: 50 Year

DRUGS (2)
  1. OXYCODONE AND ACETAMINOPHEN [Suspect]
     Active Substance: ACETAMINOPHEN\OXYCODONE HYDROCHLORIDE
     Indication: Pain
     Dosage: STRENGTH: 7.5/325 MG
     Dates: start: 2022
  2. OXYCODONE AND ACETAMINOPHEN [Suspect]
     Active Substance: ACETAMINOPHEN\OXYCODONE HYDROCHLORIDE
     Indication: Pain
     Dosage: STRENGTH: 7.5/325 MG
     Dates: start: 2023

REACTIONS (4)
  - Illness [Not Recovered/Not Resolved]
  - Dizziness [Not Recovered/Not Resolved]
  - Fatigue [Not Recovered/Not Resolved]
  - Drug ineffective [Unknown]
